FAERS Safety Report 20547247 (Version 3)
Quarter: 2022Q3

REPORT INFORMATION
  Report Type: Spontaneous
  Country: US (occurrence: None)
  Receive Date: 20220303
  Receipt Date: 20220819
  Transmission Date: 20221027
  Serious: Yes (Other)
  Sender: FDA-Public Use
  Company Number: 2022A086075

PATIENT
  Age: 21917 Day
  Sex: Female
  Weight: 120.2 kg

DRUGS (21)
  1. PRILOSEC [Suspect]
     Active Substance: OMEPRAZOLE MAGNESIUM
     Indication: Gastrooesophageal reflux disease
     Route: 048
     Dates: start: 2010, end: 2019
  2. PRILOSEC [Suspect]
     Active Substance: OMEPRAZOLE MAGNESIUM
     Indication: Gastrooesophageal reflux disease
     Route: 048
     Dates: start: 20100101, end: 20190501
  3. PRILOSEC [Suspect]
     Active Substance: OMEPRAZOLE MAGNESIUM
     Indication: Gastrooesophageal reflux disease
     Dosage: GENERIC
     Route: 048
     Dates: start: 2009, end: 2019
  4. PRILOSEC OTC [Suspect]
     Active Substance: OMEPRAZOLE MAGNESIUM
     Indication: Gastrooesophageal reflux disease
     Route: 048
     Dates: start: 2010, end: 2019
  5. PRILOSEC OTC [Suspect]
     Active Substance: OMEPRAZOLE MAGNESIUM
     Indication: Gastrooesophageal reflux disease
     Route: 048
     Dates: start: 20100101, end: 20190501
  6. MELOXICAM [Concomitant]
     Active Substance: MELOXICAM
     Indication: Pain
  7. ADVAIR DIKUS [Concomitant]
  8. ALBUTEROL SULFATE [Concomitant]
     Active Substance: ALBUTEROL SULFATE
  9. ATORVASTATIN [Concomitant]
     Active Substance: ATORVASTATIN
  10. CETIRIZINE HYDROCHLORIDE [Concomitant]
     Active Substance: CETIRIZINE HYDROCHLORIDE
  11. CITALOPRAM [Concomitant]
     Active Substance: CITALOPRAM HYDROBROMIDE
  12. BETAMETHASONE DIPROPIONATE\CLOTRIMAZOLE [Concomitant]
     Active Substance: BETAMETHASONE DIPROPIONATE\CLOTRIMAZOLE
  13. CYANOCOBALAMIN [Concomitant]
     Active Substance: CYANOCOBALAMIN
  14. MAXFE [Concomitant]
     Active Substance: ASCORBIC ACID\BIOTIN\CYANOCOBALAMIN\DOCUSATE SODIUM\FOLIC ACID\IRON\MAGNESIUM\ZINC
  15. DILTIAZEM [Concomitant]
     Active Substance: DILTIAZEM
  16. MIRALAX [Concomitant]
     Active Substance: POLYETHYLENE GLYCOL 3350
  17. MONTELUKASTT [Concomitant]
  18. SPIRONOLACTONE [Concomitant]
     Active Substance: SPIRONOLACTONE
  19. SUCRALFATE [Concomitant]
     Active Substance: SUCRALFATE
  20. TRAMADOL [Concomitant]
     Active Substance: TRAMADOL
  21. VENTOLIN [Concomitant]
     Active Substance: ALBUTEROL SULFATE

REACTIONS (3)
  - Chronic kidney disease [Not Recovered/Not Resolved]
  - Acute kidney injury [Not Recovered/Not Resolved]
  - Hyperparathyroidism secondary [Unknown]

NARRATIVE: CASE EVENT DATE: 20180420
